FAERS Safety Report 20801777 (Version 1)
Quarter: 2022Q2

REPORT INFORMATION
  Report Type: Spontaneous
  Country: US (occurrence: None)
  Receive Date: 20220506
  Receipt Date: 20220506
  Transmission Date: 20220721
  Serious: Yes (Other)
  Sender: FDA-Public Use
  Company Number: None

PATIENT
  Age: 76 Year
  Sex: Female

DRUGS (1)
  1. EVEROLIMUS [Suspect]
     Active Substance: EVEROLIMUS
     Dosage: 1MG BID ORAL?
     Route: 048
     Dates: start: 202201

REACTIONS (5)
  - Fall [None]
  - Rib fracture [None]
  - Vaginal haemorrhage [None]
  - Vaginal polyp [None]
  - Dyspnoea [None]

NARRATIVE: CASE EVENT DATE: 20220506
